FAERS Safety Report 8471728-1 (Version None)
Quarter: 2012Q2

REPORT INFORMATION
  Report Type: 
  Country: None (occurrence: None)
  Receive Date: 20120627
  Receipt Date: 20120618
  Transmission Date: 20120825
  Serious: Yes (Other)
  Sender: FDA-Public Use
  Company Number: FR-GLAXOSMITHKLINE-B0810540A

PATIENT
  Age: 59 Year
  Sex: Female

DRUGS (1)
  1. VALACYCLOVIR HYDROCHLORIDE [Suspect]
     Indication: ORAL HERPES
     Route: 048
     Dates: start: 20120601, end: 20120601

REACTIONS (2)
  - SKIN EXFOLIATION [None]
  - ACUTE GENERALISED EXANTHEMATOUS PUSTULOSIS [None]
